FAERS Safety Report 15190083 (Version 3)
Quarter: 2018Q3

REPORT INFORMATION
  Report Type: Spontaneous
  Country: GB (occurrence: GB)
  Receive Date: 20180724
  Receipt Date: 20180920
  Transmission Date: 20181010
  Serious: Yes (Other)
  Sender: FDA-Public Use
  Company Number: GB-AUROBINDO-AUR-APL-2018-035809

PATIENT
  Age: 45 Year
  Sex: Male

DRUGS (9)
  1. ZUCLOPENTHIXOL HYDROCHLORIDE [Suspect]
     Active Substance: ZUCLOPENTHIXOL HYDROCHLORIDE
     Indication: SCHIZOPHRENIA
     Dosage: UNK
     Route: 048
  2. OLANZAPINE. [Suspect]
     Active Substance: OLANZAPINE
     Indication: SCHIZOPHRENIA
     Dosage: TITRATED TO A DOSE OF 10MG TWICE DAILY
     Route: 048
  3. ZUCLOPENTHIXOL DECANOATE [Suspect]
     Active Substance: ZUCLOPENTHIXOL DECANOATE
     Indication: SCHIZOPHRENIA
     Dosage: DEPOT; TITRATED TO A DOSE OF 600MG ONCE WEEKLY
     Route: 065
  4. ZUCLOPENTHIXOL DECANOATE [Suspect]
     Active Substance: ZUCLOPENTHIXOL DECANOATE
     Indication: AGGRESSION
     Dosage: 600 MILLIGRAM, 1 WEEK DEPOT
     Route: 065
  5. ZUCLOPENTHIXOL DECANOATE [Suspect]
     Active Substance: ZUCLOPENTHIXOL DECANOATE
     Indication: SCHIZOPHRENIA
  6. LEVOTHYROXINE. [Concomitant]
     Active Substance: LEVOTHYROXINE
     Indication: HYPOTHYROIDISM
     Dosage: 150 MICROGRAM, ONCE A DAY
     Route: 065
  7. OLANZAPINE. [Suspect]
     Active Substance: OLANZAPINE
     Dosage: 20 MILLIGRAM, ONCE A DAY
     Route: 065
  8. CLOPIXOL                           /00876702/ [Suspect]
     Active Substance: ZUCLOPENTHIXOL ACETATE
     Indication: PRODUCT USED FOR UNKNOWN INDICATION
     Dosage: 600 MILLIGRAM, EVERY WEEK
     Route: 065
  9. ZUCLOPENTHIXOL HYDROCHLORIDE [Suspect]
     Active Substance: ZUCLOPENTHIXOL HYDROCHLORIDE
     Indication: AGGRESSION

REACTIONS (17)
  - Tachycardia [Unknown]
  - Blood prolactin increased [Unknown]
  - Conduction disorder [Unknown]
  - Weight decreased [Unknown]
  - Electrocardiogram QT prolonged [Unknown]
  - Type 2 diabetes mellitus [Recovering/Resolving]
  - Blood glucose increased [Unknown]
  - Paraesthesia [Unknown]
  - Blood triglycerides increased [Unknown]
  - Hypertension [Unknown]
  - Arrhythmia [Unknown]
  - Chest pain [Unknown]
  - Blood cholesterol increased [Unknown]
  - Glycosylated haemoglobin increased [Unknown]
  - Neuropathy peripheral [Recovered/Resolved]
  - Headache [Unknown]
  - Gynaecomastia [Unknown]
